FAERS Safety Report 9170034 (Version 3)
Quarter: 2013Q2

REPORT INFORMATION
  Report Type: Spontaneous
  Country: US (occurrence: None)
  Receive Date: 20130313
  Receipt Date: 20130503
  Transmission Date: 20140414
  Serious: Yes (Other)
  Sender: FDA-Public Use
  Company Number: 2013US001147

PATIENT
  Age: 46 Year
  Sex: Female
  Weight: 66.7 kg

DRUGS (9)
  1. ICLUSIG [Suspect]
     Indication: CHRONIC MYELOID LEUKAEMIA
     Dosage: 45 MG,  QD,  ORAL?02/06/2013  TO  02/19/2013
     Route: 048
     Dates: start: 20130206, end: 20130219
  2. QUESTRAN (COLESTYRAMINE) [Concomitant]
  3. XANAX (ALPRAZOLAM) [Concomitant]
  4. PROZAC (FLUOXETINE HYDROCHLORIDE) [Concomitant]
  5. LORTAB (HYDROCODONE BITARTRATE, PARACETAMOL) [Concomitant]
  6. MULTIVITAMIN (VITAMINS NOS) [Concomitant]
  7. PROBIOTIC (BIFIDOBACTERIUM LACTIS) [Concomitant]
  8. TYLENOL (PARACETAMOL) [Concomitant]
  9. ADVIL (IBUPROFEN) [Concomitant]

REACTIONS (5)
  - Skin exfoliation [None]
  - Erythema [None]
  - Skin burning sensation [None]
  - Dry skin [None]
  - Headache [None]
